FAERS Safety Report 5008509-7 (Version None)
Quarter: 2006Q2

REPORT INFORMATION
  Report Type: 
  Country: None (occurrence: None)
  Receive Date: 20060522
  Receipt Date: 20060522
  Transmission Date: 20061013
  Serious: Yes (Life-Threatening, Hospitalization)
  Sender: FDA-Public Use
  Company Number: None

PATIENT
  Age: 39 Year
  Sex: Male
  Weight: 113.3993 kg

DRUGS (3)
  1. BELLAHIST-D LA             CYPRESS PHARMACEUTICALS [Suspect]
     Indication: NASAL CONGESTION
     Dosage: 1 TABLET    BID   PO
     Route: 048
     Dates: start: 20060301, end: 20060519
  2. BELLAHIST-D LA             CYPRESS PHARMACEUTICALS [Suspect]
     Indication: SEASONAL ALLERGY
     Dosage: 1 TABLET    BID   PO
     Route: 048
     Dates: start: 20060301, end: 20060519
  3. PREVACID [Concomitant]

REACTIONS (13)
  - AMNESIA [None]
  - BODY TEMPERATURE INCREASED [None]
  - BRADYPHRENIA [None]
  - CONFUSIONAL STATE [None]
  - DELIRIUM [None]
  - DRY MOUTH [None]
  - HYPERTENSION [None]
  - IMPULSIVE BEHAVIOUR [None]
  - IRRITABILITY [None]
  - MICTURITION URGENCY [None]
  - MYDRIASIS [None]
  - URINARY RETENTION [None]
  - VISION BLURRED [None]
